FAERS Safety Report 13503286 (Version 1)
Quarter: 2017Q2

REPORT INFORMATION
  Report Type: Spontaneous
  Country: US (occurrence: US)
  Receive Date: 20170502
  Receipt Date: 20170502
  Transmission Date: 20170830
  Serious: Yes (Disabling)
  Sender: FDA-Public Use
  Company Number: None

PATIENT
  Age: 36 Year
  Sex: Female
  Weight: 140 kg

DRUGS (2)
  1. OMEPRAZOLE. [Suspect]
     Active Substance: OMEPRAZOLE
     Indication: GASTRIC PH DECREASED
     Dosage: 1 X IN AM
     Route: 048
     Dates: start: 201607, end: 20170501
  2. VITAMIN D [Concomitant]
     Active Substance: CHOLECALCIFEROL

REACTIONS (11)
  - Hypotension [None]
  - Dyspnoea [None]
  - Vomiting [None]
  - Viral upper respiratory tract infection [None]
  - Anaphylactoid reaction [None]
  - Pharyngeal oedema [None]
  - Hyperhidrosis [None]
  - Chest pain [None]
  - Swollen tongue [None]
  - Drooling [None]
  - Blood glucose increased [None]

NARRATIVE: CASE EVENT DATE: 20161001
